FAERS Safety Report 4730261-0 (Version None)
Quarter: 2005Q3

REPORT INFORMATION
  Report Type: 
  Country: None (occurrence: None)
  Receive Date: 20050801
  Receipt Date: 20050218
  Transmission Date: 20060218
  Serious: Yes (Hospitalization)
  Sender: FDA-Public Use
  Company Number: FR-ROCHE-396231

PATIENT
  Age: 65 Year
  Sex: Male
  Weight: 82 kg

DRUGS (3)
  1. XELODA [Suspect]
     Route: 048
     Dates: end: 20040115
  2. PREVISCAN [Interacting]
     Indication: PHLEBITIS
     Route: 065
  3. PREVISCAN [Interacting]
     Dosage: REINTRODUCED.
     Route: 065

REACTIONS (3)
  - DRUG INTERACTION [None]
  - INTERNATIONAL NORMALISED RATIO INCREASED [None]
  - PROTHROMBIN LEVEL DECREASED [None]
